FAERS Safety Report 8104742-6 (Version None)
Quarter: 2012Q1

REPORT INFORMATION
  Report Type: 
  Country: None (occurrence: None)
  Receive Date: 20120130
  Receipt Date: 20120123
  Transmission Date: 20120608
  Serious: Yes (Other)
  Sender: FDA-Public Use
  Company Number: JP-PFIZER INC-2012008814

PATIENT
  Age: 40 Year
  Sex: Female

DRUGS (5)
  1. BASILIXIMAB [Suspect]
     Indication: RENAL TRANSPLANT
  2. METHYLPREDNISOLONE [Suspect]
     Indication: RENAL TRANSPLANT
  3. TACROLIMUS [Suspect]
     Indication: RENAL TRANSPLANT
  4. MYCOPHENOLATE MEFETIL [Suspect]
     Indication: RENAL TRANSPLANT
  5. RITUXIMAB [Suspect]
     Indication: RENAL TRANSPLANT

REACTIONS (1)
  - POLYOMAVIRUS-ASSOCIATED NEPHROPATHY [None]
